FAERS Safety Report 7931658-8 (Version None)
Quarter: 2011Q4

REPORT INFORMATION
  Report Type: 
  Country: None (occurrence: None)
  Receive Date: 20111121
  Receipt Date: 20111110
  Transmission Date: 20120403
  Serious: Yes (Hospitalization)
  Sender: FDA-Public Use
  Company Number: PHHY2011JP099671

PATIENT
  Age: 43 Year
  Sex: Female

DRUGS (2)
  1. TEGRETOL [Suspect]
     Indication: CONVULSION
     Dosage: UNK
     Route: 048
  2. DEPAKENE [Concomitant]
     Indication: CONVULSION
     Dosage: UNK
     Route: 048

REACTIONS (2)
  - EPILEPTIC AURA [None]
  - SEPSIS [None]
